FAERS Safety Report 11039740 (Version 1)
Quarter: 2015Q2

REPORT INFORMATION
  Report Type: Report from Study
  Country: US (occurrence: US)
  Receive Date: 20150416
  Receipt Date: 20150416
  Transmission Date: 20150821
  Serious: Yes (Hospitalization)
  Sender: FDA-Public Use
  Company Number: US-PURDUE-USA-2015-0122563

PATIENT
  Sex: Female

DRUGS (2)
  1. BTDS PATCH [Suspect]
     Active Substance: BUPRENORPHINE
     Indication: PRODUCT USED FOR UNKNOWN INDICATION
     Dosage: 20 MCG/HR, WEEKLY
     Route: 062
  2. BTDS PATCH [Suspect]
     Active Substance: BUPRENORPHINE
     Dosage: UNK
     Route: 062
     Dates: start: 20141031

REACTIONS (5)
  - Bedridden [Unknown]
  - Hospitalisation [Unknown]
  - Pain [Unknown]
  - Quality of life decreased [Unknown]
  - Hernia [Unknown]
